FAERS Safety Report 7510162-5 (Version None)
Quarter: 2011Q2

REPORT INFORMATION
  Report Type: 
  Country: None (occurrence: None)
  Receive Date: 20110527
  Receipt Date: 20110516
  Transmission Date: 20111010
  Serious: Yes (Hospitalization)
  Sender: FDA-Public Use
  Company Number: JP-UCBSA-029465

PATIENT
  Sex: Male

DRUGS (12)
  1. CIMZIA [Suspect]
     Dosage: RA0006
     Route: 058
     Dates: start: 20090326
  2. CIMZIA [Suspect]
     Route: 058
     Dates: start: 20090716
  3. AMLODIPINE [Suspect]
     Indication: HYPERTENSION
     Route: 048
     Dates: start: 20001205
  4. MUCOSTA TABLETS [Suspect]
     Indication: GASTRITIS
     Route: 048
     Dates: start: 20081009
  5. SELTOUCH [Suspect]
     Indication: RHEUMATOID ARTHRITIS
     Dosage: ADEQUATE DOSE
     Route: 062
     Dates: start: 20100105
  6. PRAVASTATIN SODIUM [Suspect]
     Indication: HYPERLIPIDAEMIA
     Route: 048
     Dates: start: 20001205
  7. PRANOPROFEN [Suspect]
     Indication: CATARACT
     Dosage: 4 GTT
     Route: 047
  8. CIMZIA [Suspect]
     Indication: RHEUMATOID ARTHRITIS
     Dosage: RA0006
     Route: 058
  9. TIGASON [Suspect]
     Indication: PSORIASIS
     Route: 048
     Dates: start: 20010508
  10. ETODOLAC [Suspect]
     Indication: RHEUMATOID ARTHRITIS
     Route: 048
     Dates: start: 20080912
  11. PREDNISOLONE [Suspect]
     Indication: RHEUMATOID ARTHRITIS
     Route: 048
     Dates: start: 20080912
  12. ENALAPRIL MALEATE [Suspect]
     Indication: HYPERTENSION
     Route: 048
     Dates: start: 20001205

REACTIONS (1)
  - COLONIC POLYP [None]
